FAERS Safety Report 6454689-6 (Version None)
Quarter: 2009Q4

REPORT INFORMATION
  Report Type: 
  Country: None (occurrence: None)
  Receive Date: 20091118
  Receipt Date: 20091104
  Transmission Date: 20100525
  Serious: Yes (Hospitalization)
  Sender: FDA-Public Use
  Company Number: 8054397

PATIENT
  Age: 69 Year
  Sex: Female

DRUGS (5)
  1. PREDNISOLONE [Suspect]
  2. RITUXIMAB [Suspect]
  3. CYCLOPHOSPHAMIDE [Suspect]
  4. DOXORUBICIN [Suspect]
  5. VINCRISTINE [Suspect]

REACTIONS (1)
  - INTERSTITIAL LUNG DISEASE [None]
